FAERS Safety Report 7215789-6 (Version None)
Quarter: 2011Q1

REPORT INFORMATION
  Report Type: 
  Country: None (occurrence: None)
  Receive Date: 20110107
  Receipt Date: 20101227
  Transmission Date: 20110831
  Serious: Yes (Other)
  Sender: FDA-Public Use
  Company Number: JP-PFIZER INC-2010138881

PATIENT
  Age: 75 Year
  Sex: Male
  Weight: 37.3 kg

DRUGS (4)
  1. LYRICA [Suspect]
     Indication: NEURALGIA
     Dosage: 75 MG, 2X/DAY
     Route: 048
     Dates: start: 20100903
  2. FLOMOX [Suspect]
     Indication: INFECTION
     Dosage: 100 MG, 3X/DAY
     Route: 048
     Dates: start: 20100827, end: 20100911
  3. LYRICA [Suspect]
     Indication: HYPOAESTHESIA
     Dosage: 25 MG, 2X/DAY
     Route: 048
     Dates: start: 20100907
  4. OLMETEC [Suspect]
     Indication: HYPERTENSION
     Dosage: 20 MG, 1X/DAY
     Route: 048

REACTIONS (9)
  - BLOOD LACTATE DEHYDROGENASE DECREASED [None]
  - INFECTED SKIN ULCER [None]
  - HAEMATOCRIT DECREASED [None]
  - BLOOD UREA INCREASED [None]
  - BLOOD ALBUMIN DECREASED [None]
  - HAEMOGLOBIN DECREASED [None]
  - RED BLOOD CELL COUNT DECREASED [None]
  - GAMMA-GLUTAMYLTRANSFERASE DECREASED [None]
  - CONVULSION [None]
